FAERS Safety Report 20227600 (Version 1)
Quarter: 2021Q4

REPORT INFORMATION
  Report Type: Spontaneous
  Country: FR (occurrence: FR)
  Receive Date: 20211224
  Receipt Date: 20211224
  Transmission Date: 20220303
  Serious: Yes (Hospitalization)
  Sender: FDA-Public Use
  Company Number: None

PATIENT
  Age: 36 Year
  Sex: Male
  Weight: 120 kg

DRUGS (5)
  1. AMOXICILLIN\CLAVULANATE POTASSIUM [Suspect]
     Active Substance: AMOXICILLIN\CLAVULANATE POTASSIUM
     Indication: Pyrexia
     Dosage: AMOXICILLINE + AC CLAV 1 G/200 MG 3/JOUR
     Route: 042
     Dates: start: 20211112, end: 20211114
  2. PIPERACILLIN AND TAZOBACTAM [Suspect]
     Active Substance: PIPERACILLIN SODIUM\TAZOBACTAM SODIUM
     Indication: Lung disorder
     Dosage: PIP-TAZ 4 G /0,5 G INJECTABLE 4/J
     Route: 042
     Dates: start: 20211125, end: 20211126
  3. TEMOCILLIN [Suspect]
     Active Substance: TEMOCILLIN
     Indication: Lung disorder
     Dosage: NEGABAN?(T?MOCILLINE) 2 G/J
     Route: 042
     Dates: start: 20211126, end: 20211202
  4. AMOXICILLIN [Suspect]
     Active Substance: AMOXICILLIN
     Indication: Antibiotic prophylaxis
     Dosage: AMOXICILLINE INJ 500 MG/12 H
     Route: 042
     Dates: start: 20211121, end: 20211204
  5. PENICILLIN V [Suspect]
     Active Substance: PENICILLIN V
     Indication: Antibiotic prophylaxis
     Dosage: SOL BUV PH?NOXYM?THYLP?NICILLINE 2 MUI/12 H
     Route: 002
     Dates: start: 20211120, end: 20211124

REACTIONS (1)
  - Rash maculo-papular [Recovering/Resolving]

NARRATIVE: CASE EVENT DATE: 20211125
